FAERS Safety Report 6899408-4 (Version None)
Quarter: 2010Q3

REPORT INFORMATION
  Report Type: 
  Country: None (occurrence: None)
  Receive Date: 20100803
  Receipt Date: 20090701
  Transmission Date: 20110219
  Serious: No
  Sender: FDA-Public Use
  Company Number: US-PFIZER INC-2007061432

PATIENT
  Sex: Female
  Weight: 51.709 kg

DRUGS (9)
  1. LYRICA [Suspect]
     Indication: NEUROPATHY PERIPHERAL
     Dosage: 50 MG, 2X/DAY
     Route: 048
     Dates: start: 20070401
  2. VASOTEC [Concomitant]
     Indication: HYPERTENSION
  3. TOPROL-XL [Concomitant]
     Indication: HYPERTENSION
  4. BENICAR [Concomitant]
  5. SORAFENIB [Concomitant]
  6. LEVOXYL [Concomitant]
  7. AZOR [Concomitant]
     Indication: HYPERTENSION
  8. MEVACOR [Concomitant]
     Indication: BLOOD CHOLESTEROL INCREASED
  9. TERIPARATIDE [Concomitant]
     Indication: OSTEOPOROSIS

REACTIONS (4)
  - ANAEMIA [None]
  - JOINT SWELLING [None]
  - LIPIDS DECREASED [None]
  - WEIGHT INCREASED [None]
